FAERS Safety Report 4861857-3 (Version None)
Quarter: 2005Q4

REPORT INFORMATION
  Report Type: 
  Country: None (occurrence: None)
  Receive Date: 20051130
  Receipt Date: 20041027
  Transmission Date: 20060501
  Serious: Yes (Other)
  Sender: FDA-Public Use
  Company Number: 2004241885US

PATIENT
  Age: 90 Year
  Sex: Male

DRUGS (3)
  1. ZYVOX [Suspect]
     Indication: WOUND INFECTION
     Dosage: 600 MG, BID, ORAL
     Route: 048
     Dates: start: 20041001
  2. GLUCOPHAGE [Concomitant]
  3. POTASSIUM [Concomitant]

REACTIONS (1)
  - THROMBOCYTOPENIA [None]
